APPROVED DRUG PRODUCT: PHENYLBUTAZONE
Active Ingredient: PHENYLBUTAZONE
Strength: 100MG
Dosage Form/Route: CAPSULE;ORAL
Application: A087774 | Product #001
Applicant: CHARTWELL RX SCIENCES LLC
Approved: Jun 16, 1982 | RLD: No | RS: No | Type: DISCN